FAERS Safety Report 14923437 (Version 4)
Quarter: 2025Q4

REPORT INFORMATION
  Report Type: Spontaneous
  Country: EU (occurrence: EU)
  Receive Date: 20180522
  Receipt Date: 20251015
  Transmission Date: 20260118
  Serious: Yes (Hospitalization, Other)
  Sender: TORRENT PHARMA INC.
  Company Number: None

PATIENT
  Age: 70 Year
  Sex: Male

DRUGS (8)
  1. SIMVASTATIN [Interacting]
     Active Substance: SIMVASTATIN
     Indication: Hypercholesterolaemia
     Dosage: 80 MG/DAY QD
     Route: 048
  2. LEVOFLOXACIN [Interacting]
     Active Substance: LEVOFLOXACIN
     Indication: Pneumonia
     Dosage: 500 MG/24 H (5 DAYS), 500 MG/12 H (3 DAYS)
     Route: 042
  3. AMPICILLIN SODIUM\SULBACTAM SODIUM [Suspect]
     Active Substance: AMPICILLIN SODIUM\SULBACTAM SODIUM
     Indication: Pneumonia
     Dosage: UNKNOWN
     Route: 065
  4. METOPROLOL [Interacting]
     Active Substance: METOPROLOL
     Indication: Product used for unknown indication
     Dosage: 25 MG, BID/DAILY DOSE: 50 MG MILLIGRAM(S) EVERY DAY
     Route: 065
  5. LEVOFLOXACIN [Interacting]
     Active Substance: LEVOFLOXACIN
     Indication: Pneumonia
     Dosage: DAILY DOSE: 1000 MG MILLIGRAM(S) EVERY DAY
     Route: 042
  6. ASPIRIN [Concomitant]
     Active Substance: ASPIRIN
     Indication: Product used for unknown indication
     Dosage: 100 MG/DAY
     Route: 065
  7. DIGITOXIN [Concomitant]
     Active Substance: DIGITOXIN
     Indication: Product used for unknown indication
     Dosage: 0.07 MG/DAY, QD
     Route: 065
  8. FUROSEMIDE [Concomitant]
     Active Substance: FUROSEMIDE
     Indication: Product used for unknown indication
     Dosage: 40 MG/DAY
     Route: 048

REACTIONS (22)
  - Drug interaction [Recovered/Resolved]
  - Rhabdomyolysis [Recovered/Resolved]
  - Hepatocellular injury [Recovered/Resolved]
  - General physical health deterioration [Recovered/Resolved]
  - Dysstasia [Recovering/Resolving]
  - Inflammatory marker increased [Recovering/Resolving]
  - Asthenia [Recovered/Resolved]
  - Non-small cell lung cancer [Unknown]
  - Hepatic enzyme increased [Recovered/Resolved]
  - Muscle enzyme increased [Recovered/Resolved]
  - Muscular weakness [Recovering/Resolving]
  - Respiratory failure [Recovering/Resolving]
  - Loss of personal independence in daily activities [Recovered/Resolved]
  - Diarrhoea [Unknown]
  - Muscular weakness [Recovered/Resolved]
  - Asthenia [Recovered/Resolved]
  - Disability [Recovered/Resolved]
  - Blood creatine phosphokinase increased [Recovered/Resolved]
  - C-reactive protein increased [Recovered/Resolved]
  - Aspartate aminotransferase increased [Recovered/Resolved]
  - Alanine aminotransferase increased [Recovered/Resolved]
  - Muscular weakness [Unknown]
